FAERS Safety Report 4303794-9 (Version None)
Quarter: 2004Q1

REPORT INFORMATION
  Report Type: 
  Country: None (occurrence: None)
  Receive Date: 20040224
  Receipt Date: 20040224
  Transmission Date: 20041129
  Serious: Yes (Other)
  Sender: FDA-Public Use
  Company Number: None

PATIENT
  Age: 27 Year
  Sex: Female
  Weight: 86.1834 kg

DRUGS (1)
  1. PAXIL CR [Suspect]
     Indication: PANIC DISORDER
     Dosage: 25 MG 3 DAILY ORAL
     Route: 048
     Dates: start: 20021201, end: 20040201

REACTIONS (11)
  - ANXIETY [None]
  - DEPRESSION [None]
  - FEELING ABNORMAL [None]
  - INSOMNIA [None]
  - METRORRHAGIA [None]
  - NAUSEA [None]
  - NERVOUSNESS [None]
  - NIGHTMARE [None]
  - PARAESTHESIA [None]
  - SUICIDAL IDEATION [None]
  - VOMITING [None]
